FAERS Safety Report 17115223 (Version 1)
Quarter: 2019Q4

REPORT INFORMATION
  Report Type: Spontaneous
  Country: US (occurrence: US)
  Receive Date: 20191204
  Receipt Date: 20191204
  Transmission Date: 20200122
  Serious: Yes (Life-Threatening, Hospitalization)
  Sender: FDA-Public Use
  Company Number: None

PATIENT
  Age: 64 Year
  Sex: Female
  Weight: 83.2 kg

DRUGS (3)
  1. PIQRAY [Suspect]
     Active Substance: ALPELISIB
     Indication: BREAST CANCER
     Route: 048
     Dates: start: 20191114, end: 20191130
  2. ZOLOFT [Concomitant]
     Active Substance: SERTRALINE HYDROCHLORIDE
     Dates: start: 20180711
  3. FULVESTRANT. [Concomitant]
     Active Substance: FULVESTRANT
     Dates: start: 20191106

REACTIONS (4)
  - Unresponsive to stimuli [None]
  - Seizure [None]
  - Hyperglycaemia [None]
  - Acidosis [None]

NARRATIVE: CASE EVENT DATE: 20191130
